FAERS Safety Report 4579864-7 (Version None)
Quarter: 2005Q1

REPORT INFORMATION
  Report Type: 
  Country: None (occurrence: None)
  Receive Date: 20050214
  Receipt Date: 20050204
  Transmission Date: 20050727
  Serious: Yes (Other)
  Sender: FDA-Public Use
  Company Number: 200511219GDDC

PATIENT
  Sex: Female

DRUGS (2)
  1. RIFAMPICIN [Suspect]
     Indication: TUBERCULOSIS
     Dosage: DOSE: UNKNOWN DOSAGE
  2. GABAPENTIN [Suspect]
     Indication: NEUROPATHIC PAIN
     Dosage: DOSE: UNKNOWN DOSAGE
     Route: 048

REACTIONS (2)
  - DRUG INEFFECTIVE [None]
  - DRUG INTERACTION [None]
